FAERS Safety Report 21802105 (Version 1)
Quarter: 2022Q4

REPORT INFORMATION
  Report Type: Report from Study
  Country: US (occurrence: US)
  Receive Date: 20221230
  Receipt Date: 20221230
  Transmission Date: 20230113
  Serious: No
  Sender: FDA-Public Use
  Company Number: US-ACORDA-ACO_172520_2022

PATIENT
  Age: 80 Year
  Sex: Male

DRUGS (4)
  1. INBRIJA [Suspect]
     Active Substance: LEVODOPA
     Indication: Parkinson^s disease
     Dosage: 2 DOSAGE FORM, 3 TIMES DAILY AS NEEDED
     Dates: start: 20201103
  2. INBRIJA [Suspect]
     Active Substance: LEVODOPA
     Indication: On and off phenomenon
     Dosage: 2 DOSAGE FORM, 3 TIMES DAILY AS NEEDED
     Dates: start: 20201103
  3. INBRIJA [Suspect]
     Active Substance: LEVODOPA
     Dosage: 2 DOSAGE FORM, 3 TIMES DAILY AS NEEDED
     Dates: start: 20201103
  4. NOURIANZ [Concomitant]
     Active Substance: ISTRADEFYLLINE
     Indication: Product used for unknown indication
     Dosage: 20 MILLIGRAM
     Route: 065

REACTIONS (8)
  - Gait inability [Not Recovered/Not Resolved]
  - Urge incontinence [Unknown]
  - Clostridium difficile infection [Unknown]
  - Parkinson^s disease [Not Recovered/Not Resolved]
  - Adverse event [Unknown]
  - Incorrect dose administered [Unknown]
  - Gait disturbance [Unknown]
  - Pneumonia [Unknown]

NARRATIVE: CASE EVENT DATE: 20220601
